FAERS Safety Report 7206550-7 (Version None)
Quarter: 2011Q1

REPORT INFORMATION
  Report Type: 
  Country: None (occurrence: None)
  Receive Date: 20110103
  Receipt Date: 20101220
  Transmission Date: 20110831
  Serious: Yes (Hospitalization)
  Sender: FDA-Public Use
  Company Number: PHHY2010JP87760

PATIENT
  Sex: Female
  Weight: 54 kg

DRUGS (2)
  1. DIOVAN [Suspect]
     Dosage: 80 MG, QD
     Route: 048
     Dates: start: 20090121, end: 20090414
  2. PLETAL [Concomitant]
     Dosage: 100 MG, UNK
     Route: 048
     Dates: start: 20081015, end: 20090317

REACTIONS (2)
  - CEREBRAL INFARCTION [None]
  - LUNG NEOPLASM MALIGNANT [None]
